FAERS Safety Report 24296805 (Version 1)
Quarter: 2024Q3

REPORT INFORMATION
  Report Type: Spontaneous
  Country: US (occurrence: US)
  Receive Date: 20240909
  Receipt Date: 20240909
  Transmission Date: 20241017
  Serious: No
  Sender: AMGEN
  Company Number: US-AMGEN-USASP2024175946

PATIENT
  Age: 38 Year
  Sex: Female

DRUGS (2)
  1. PREDNISONE [Suspect]
     Active Substance: PREDNISONE
     Indication: Haemophagocytic lymphohistiocytosis
     Dosage: UNK,TAPER AS AN OUTPATIENT OVER 17 DAYS
     Route: 065
  2. DEXAMETHASONE [Concomitant]
     Active Substance: DEXAMETHASONE
     Indication: Haemophagocytic lymphohistiocytosis
     Dosage: 40 MILLIGRAM, QD (FOR 10 DAYS)

REACTIONS (3)
  - Drug effective for unapproved indication [Unknown]
  - Maternal exposure during pregnancy [Unknown]
  - Off label use [Unknown]
